FAERS Safety Report 23619251 (Version 2)
Quarter: 2024Q2

REPORT INFORMATION
  Report Type: Spontaneous
  Country: US (occurrence: US)
  Receive Date: 20240311
  Receipt Date: 20240411
  Transmission Date: 20240716
  Serious: Yes (Other)
  Sender: FDA-Public Use
  Company Number: US-AMRYT PHARMACEUTICALS DAC-AEGR006961

PATIENT
  Age: 66 Year
  Sex: Female
  Weight: 158.73 kg

DRUGS (12)
  1. MYCAPSSA [Suspect]
     Active Substance: OCTREOTIDE
     Indication: Acromegaly
     Dosage: 20 MILLIGRAM, BID
     Dates: start: 202009
  2. MYCAPSSA [Suspect]
     Active Substance: OCTREOTIDE
     Dosage: 40 MILLIGRAM, BID
     Dates: start: 202204
  3. MYCAPSSA [Suspect]
     Active Substance: OCTREOTIDE
     Dosage: 60 MILLIGRAM, BID
     Dates: start: 202402
  4. MYCAPSSA [Suspect]
     Active Substance: OCTREOTIDE
     Dosage: 40 MILLIGRAM, BID
     Dates: end: 20240222
  5. METFORMIN [Concomitant]
     Active Substance: METFORMIN HYDROCHLORIDE
     Indication: Product used for unknown indication
     Dosage: 500 MG 2 TABS BID
  6. MONTELUKAST [Concomitant]
     Active Substance: MONTELUKAST SODIUM
     Indication: Product used for unknown indication
     Dosage: 10 NG DAILY AT NIGHT
  7. SEMAGLUTIDE [Concomitant]
     Active Substance: SEMAGLUTIDE
     Indication: Product used for unknown indication
     Dosage: INJECTION
  8. SIMVASTATIN [Concomitant]
     Active Substance: SIMVASTATIN
     Indication: Product used for unknown indication
     Dosage: 40 MG DAILY
  9. ZANAFLEX [Concomitant]
     Active Substance: TIZANIDINE HYDROCHLORIDE
     Indication: Product used for unknown indication
     Dosage: 4 MG DAILY
  10. FLUTICASONE [Concomitant]
     Active Substance: FLUTICASONE
     Indication: Product used for unknown indication
     Dosage: INHALER
  11. FUROSEMIDE [Concomitant]
     Active Substance: FUROSEMIDE
     Indication: Product used for unknown indication
     Dosage: 20 MG DAILY
  12. COLCHICINE [Concomitant]
     Active Substance: COLCHICINE
     Indication: Product used for unknown indication
     Dosage: 0.6 NG DAILY

REACTIONS (3)
  - Neoplasm recurrence [Unknown]
  - Meningioma [Unknown]
  - Constipation [Unknown]

NARRATIVE: CASE EVENT DATE: 20240113
